FAERS Safety Report 21837677 (Version 4)
Quarter: 2023Q1

REPORT INFORMATION
  Report Type: Spontaneous
  Country: US (occurrence: US)
  Receive Date: 20230109
  Receipt Date: 20230330
  Transmission Date: 20230418
  Serious: No
  Sender: FDA-Public Use
  Company Number: US-PFIZER INC-202200611630

PATIENT
  Age: 53 Year
  Sex: Male
  Weight: 90.703 kg

DRUGS (2)
  1. LORBRENA [Suspect]
     Active Substance: LORLATINIB
     Indication: Non-small cell lung cancer stage IV
     Dosage: 125 MG, 1X/DAY ((100MG AND 25MG) BY MOUTH DAILY)
     Route: 048
     Dates: start: 20200828, end: 2023
  2. LORBRENA [Suspect]
     Active Substance: LORLATINIB
     Indication: Metastases to meninges

REACTIONS (1)
  - Neoplasm progression [Unknown]

NARRATIVE: CASE EVENT DATE: 20230101
